FAERS Safety Report 12920765 (Version 1)
Quarter: 2016Q4

REPORT INFORMATION
  Report Type: Spontaneous
  Country: US (occurrence: US)
  Receive Date: 20161108
  Receipt Date: 20161108
  Transmission Date: 20170207
  Serious: No
  Sender: FDA-Public Use
  Company Number: US-ENDO PHARMACEUTICALS INC.-2016-003332

PATIENT
  Sex: Male
  Weight: 102.15 kg

DRUGS (2)
  1. VERAPAMIL [Concomitant]
     Active Substance: VERAPAMIL HYDROCHLORIDE
     Indication: PROPHYLAXIS
  2. IBUPROFEN TABLETS 800MG [Suspect]
     Active Substance: IBUPROFEN
     Indication: HEADACHE
     Dosage: ONE OR TWO TABLETS
     Route: 048
     Dates: start: 2015

REACTIONS (1)
  - Drug ineffective [Unknown]
